FAERS Safety Report 9938071 (Version 1)
Quarter: 2014Q1

REPORT INFORMATION
  Report Type: Report from Study
  Country: US (occurrence: US)
  Receive Date: 20140303
  Receipt Date: 20140303
  Transmission Date: 20141002
  Serious: Yes (Other)
  Sender: FDA-Public Use
  Company Number: US-009507513-1403USA000256

PATIENT
  Sex: 0

DRUGS (3)
  1. REBETOL [Suspect]
     Indication: HEPATITIS C
     Dosage: ORALLY TWICE DAILY AT A DOSE OF 1000 TO 1200 MG PER DAY, ACCORDING TO BODY WEIGHT
  2. DACLATASVIR [Suspect]
     Indication: HEPATITIS C
     Dosage: 60 MG, QD
     Route: 048
  3. SOFOSBUVIR [Suspect]
     Indication: HEPATITIS C
     Dosage: 400 MG, QD
     Route: 048

REACTIONS (1)
  - Overdose [Unknown]
